FAERS Safety Report 4802081-X (Version None)
Quarter: 2005Q4

REPORT INFORMATION
  Report Type: 
  Country: None (occurrence: None)
  Receive Date: 20051011
  Receipt Date: 20050929
  Transmission Date: 20060501
  Serious: Yes (Death, Other)
  Sender: FDA-Public Use
  Company Number: 2005135425

PATIENT
  Age: 52 Year
  Sex: Male

DRUGS (5)
  1. ZOLOFT [Suspect]
     Indication: ILL-DEFINED DISORDER
  2. TRAZODONE HCL [Suspect]
     Indication: ILL-DEFINED DISORDER
  3. HEROIN (DIAMORPHINE) [Suspect]
     Indication: ILL-DEFINED DISORDER
  4. CODEINE (CODEINE) [Suspect]
     Indication: ILL-DEFINED DISORDER
  5. DIAZEPAM [Suspect]
     Indication: ILL-DEFINED DISORDER

REACTIONS (11)
  - DRUG INTERACTION [None]
  - HEPATIC STEATOSIS [None]
  - HEPATITIS B [None]
  - HEPATITIS C [None]
  - HEPATOMEGALY [None]
  - NARCOTIC INTOXICATION [None]
  - OVERDOSE [None]
  - PULMONARY ALVEOLAR HAEMORRHAGE [None]
  - PULMONARY CONGESTION [None]
  - PULMONARY OEDEMA [None]
  - RENAL DISORDER [None]
